FAERS Safety Report 5052331-2 (Version None)
Quarter: 2006Q2

REPORT INFORMATION
  Report Type: 
  Country: None (occurrence: None)
  Receive Date: 20060614
  Receipt Date: 20060227
  Transmission Date: 20061013
  Serious: Yes (Other)
  Sender: FDA-Public Use
  Company Number: 438465

PATIENT
  Age: 92 Year
  Sex: Female

DRUGS (3)
  1. BONIVA [Suspect]
     Indication: BACK PAIN
     Dosage: ORAL
     Route: 048
     Dates: start: 20060201
  2. ACETAMINOPHEN [Concomitant]
  3. NORVASC [Concomitant]

REACTIONS (5)
  - ARTHRALGIA [None]
  - ASTHENIA [None]
  - FALL [None]
  - NECK PAIN [None]
  - URINARY TRACT INFECTION [None]
